FAERS Safety Report 9149368 (Version 2)
Quarter: 2013Q2

REPORT INFORMATION
  Report Type: Spontaneous
  Country: US (occurrence: US)
  Receive Date: 20130308
  Receipt Date: 20130523
  Transmission Date: 20140414
  Serious: No
  Sender: FDA-Public Use
  Company Number: US-PFIZER INC-2013077034

PATIENT
  Age: 71 Year
  Sex: Female
  Weight: 68.93 kg

DRUGS (10)
  1. ESTRING [Suspect]
     Indication: VAGINAL INFECTION
     Dosage: 2 MG, EVERY 3 MONTHS
     Route: 067
  2. ESTRING [Suspect]
     Indication: POLLAKIURIA
  3. ESTRING [Suspect]
     Indication: HORMONE REPLACEMENT THERAPY
  4. ESTRING [Suspect]
     Indication: MENOPAUSAL SYMPTOMS
  5. ESTRING [Suspect]
     Indication: VULVOVAGINAL PAIN
  6. ELMIRON [Concomitant]
     Indication: CYSTITIS INTERSTITIAL
     Dosage: 100 MG, 2X/DAY
  7. HYOPHEN [Concomitant]
     Indication: CYSTITIS INTERSTITIAL
     Dosage: 1 DF, 2X/DAY
  8. LOSARTAN [Concomitant]
     Indication: AORTIC ANEURYSM
     Dosage: 25 MG, 1X/DAY
  9. DILTIAZEM [Concomitant]
     Indication: HYPERTENSION
     Dosage: 120 MG, 1X/DAY
  10. CHLORTHALIDONE [Concomitant]
     Indication: HYPERTENSION
     Dosage: 12.5 MG, 1X/DAY

REACTIONS (8)
  - Product quality issue [Unknown]
  - Drug ineffective [Unknown]
  - Oestradiol decreased [Unknown]
  - Progesterone decreased [Unknown]
  - Hot flush [Not Recovered/Not Resolved]
  - Sleep disorder [Unknown]
  - Laceration [Unknown]
  - Nail disorder [Unknown]
